FAERS Safety Report 7500235-5 (Version None)
Quarter: 2011Q2

REPORT INFORMATION
  Report Type: 
  Country: None (occurrence: None)
  Receive Date: 20110517
  Receipt Date: 20110509
  Transmission Date: 20111010
  Serious: Yes (Hospitalization, Other)
  Sender: FDA-Public Use
  Company Number: 1000020886

PATIENT
  Age: 67 Year
  Sex: Male

DRUGS (7)
  1. PANTOPRAZOL (PANTOPRAZOLE) [Concomitant]
  2. ROFLUMILAST (ROFLUMILAST) (500 MICROGRAM, TABLETS) [Suspect]
     Indication: CHRONIC OBSTRUCTIVE PULMONARY DISEASE
     Dosage: 500 MCG (500 MCG, 1 IN 1 D), ORAL
     Route: 048
     Dates: start: 20110328, end: 20110403
  3. CICLESONIDE (CICLESONIDE) [Concomitant]
  4. BACLOFEN [Concomitant]
  5. DICLOFENAC SODIUM [Concomitant]
  6. TIOTROPIUM (TIOTROPIUM) [Concomitant]
  7. FORMOTEROL (FORMOTEROL) [Concomitant]

REACTIONS (12)
  - DISTURBANCE IN ATTENTION [None]
  - DYSPNOEA [None]
  - HEADACHE [None]
  - INSOMNIA [None]
  - MUSCLE CONTRACTIONS INVOLUNTARY [None]
  - FATIGUE [None]
  - SENSORY LOSS [None]
  - PARAESTHESIA [None]
  - DIZZINESS [None]
  - SOMNOLENCE [None]
  - AGITATION [None]
  - DEPRESSION SUICIDAL [None]
